FAERS Safety Report 14683242 (Version 4)
Quarter: 2018Q2

REPORT INFORMATION
  Report Type: Report from Study
  Country: None (occurrence: US)
  Receive Date: 20180327
  Receipt Date: 20180518
  Transmission Date: 20180711
  Serious: Yes (Hospitalization, Other)
  Sender: FDA-Public Use
  Company Number: US-ABBVIE-18K-163-2296555-00

PATIENT
  Age: 60 Year
  Sex: Male
  Weight: 112.14 kg

DRUGS (9)
  1. HYDROCORTISONE. [Concomitant]
     Active Substance: HYDROCORTISONE
     Indication: ADDISON^S DISEASE
  2. ANASTROZOLE. [Concomitant]
     Active Substance: ANASTROZOLE
     Indication: ADDISON^S DISEASE
  3. HUMIRA [Suspect]
     Active Substance: ADALIMUMAB
     Indication: RHEUMATOID ARTHRITIS
     Route: 058
     Dates: start: 2016
  4. LISINOPRIL. [Concomitant]
     Active Substance: LISINOPRIL
     Indication: HYPERTENSION
  5. GABAPENTIN. [Concomitant]
     Active Substance: GABAPENTIN
     Indication: RHEUMATOID ARTHRITIS
  6. AMITRIPTYLINE [Concomitant]
     Active Substance: AMITRIPTYLINE
     Indication: DEPRESSION
  7. SULFASALAZINE. [Concomitant]
     Active Substance: SULFASALAZINE
     Indication: RHEUMATOID ARTHRITIS
  8. SOMA [Concomitant]
     Active Substance: CARISOPRODOL
     Indication: RHEUMATOID ARTHRITIS
  9. FLUDROCORTISONE [Concomitant]
     Active Substance: FLUDROCORTISONE
     Indication: ADDISON^S DISEASE

REACTIONS (6)
  - Addison^s disease [Recovered/Resolved]
  - Somnambulism [Recovered/Resolved]
  - Rhabdomyolysis [Recovered/Resolved]
  - Confusional state [Recovered/Resolved]
  - Arthralgia [Unknown]
  - Fall [Recovered/Resolved]

NARRATIVE: CASE EVENT DATE: 201712
